FAERS Safety Report 6514689-4 (Version None)
Quarter: 2009Q4

REPORT INFORMATION
  Report Type: 
  Country: None (occurrence: None)
  Receive Date: 20091222
  Receipt Date: 20091222
  Transmission Date: 20100525
  Serious: Yes (Hospitalization)
  Sender: FDA-Public Use
  Company Number: None

PATIENT
  Age: 78 Year
  Sex: Male
  Weight: 81.88 kg

DRUGS (9)
  1. AMIODARONE HCL [Suspect]
     Indication: ATRIAL FIBRILLATION
     Dosage: 200MG TID PO RECENT INCREASE
     Route: 048
  2. AMIODARONE HCL [Suspect]
     Indication: MITRAL VALVE REPAIR
     Dosage: 200MG TID PO RECENT INCREASE
     Route: 048
  3. LEVOTHYROXINE SODIUM [Concomitant]
  4. ALFUZOSIN HCL [Concomitant]
  5. DULOXETINE HYDROCHLORIDE [Concomitant]
  6. ERGOCALCIFEROL [Concomitant]
  7. FUROSEMIDE [Concomitant]
  8. AHSN [Concomitant]
  9. WARFARIN SODIUM [Concomitant]

REACTIONS (6)
  - DIVERTICULUM [None]
  - DRUG LEVEL BELOW THERAPEUTIC [None]
  - HAEMOGLOBIN DECREASED [None]
  - IRON DEFICIENCY [None]
  - PNEUMONIA [None]
  - PULMONARY TOXICITY [None]
